FAERS Safety Report 23391527 (Version 1)
Quarter: 2024Q1

REPORT INFORMATION
  Report Type: Spontaneous
  Country: US (occurrence: None)
  Receive Date: 20240110
  Receipt Date: 20240110
  Transmission Date: 20240409
  Serious: Yes (Hospitalization)
  Sender: FDA-Public Use
  Company Number: None

PATIENT
  Age: 65 Year
  Sex: Male

DRUGS (1)
  1. EVEROLIMUS [Suspect]
     Active Substance: EVEROLIMUS
     Indication: Renal cancer
     Dosage: FREQUENCY : DAILY;?

REACTIONS (8)
  - Hypocalcaemia [None]
  - Dysphonia [None]
  - Taste disorder [None]
  - Nausea [None]
  - Skin tightness [None]
  - Hypertension [None]
  - Dysphonia [None]
  - Renal disorder [None]
